FAERS Safety Report 4321226-1 (Version None)
Quarter: 2004Q1

REPORT INFORMATION
  Report Type: 
  Country: None (occurrence: None)
  Receive Date: 20040322
  Receipt Date: 20040322
  Transmission Date: 20041129
  Serious: Yes (Death, Life-Threatening, Hospitalization)
  Sender: FDA-Public Use
  Company Number: None

PATIENT
  Sex: Female
  Weight: 117.9 kg

DRUGS (1)
  1. GEMCITABINE [Suspect]
     Indication: COLON CANCER
     Dosage: 1000 MG/M2 IV WEEKLY !
     Route: 042
     Dates: start: 20040112, end: 20040126

REACTIONS (6)
  - COAGULOPATHY [None]
  - DISEASE PROGRESSION [None]
  - HAEMATEMESIS [None]
  - HAEMOGLOBIN DECREASED [None]
  - HEPATIC FAILURE [None]
  - JAUNDICE CHOLESTATIC [None]
